FAERS Safety Report 10585409 (Version 1)
Quarter: 2014Q4

REPORT INFORMATION
  Report Type: Spontaneous
  Country: CA (occurrence: None)
  Receive Date: 20141113
  Receipt Date: 20141113
  Transmission Date: 20150529
  Serious: Yes (Hospitalization)
  Sender: FDA-Public Use
  Company Number: CA-ZYDUS-005445

PATIENT
  Age: 68 Year
  Sex: Male

DRUGS (2)
  1. VALPROIC ACID (VALPROIC ACID) [Suspect]
     Active Substance: VALPROIC ACID
     Indication: TONIC CONVULSION
     Dosage: 4.00 TIMES PER - 1.0 DAYS
  2. LEVETIRACETAM (LEVETIRACETAM) [Suspect]
     Active Substance: LEVETIRACETAM
     Indication: TONIC CONVULSION
     Dosage: 2.00 TIMES PER -1.0 DAYS

REACTIONS (3)
  - Somnolence [None]
  - Post-anoxic myoclonus [None]
  - Serotonin syndrome [None]
